FAERS Safety Report 5279238-X (Version None)
Quarter: 2007Q1

REPORT INFORMATION
  Report Type: 
  Country: None (occurrence: None)
  Receive Date: 20061213
  Receipt Date: 20051208
  Transmission Date: 20070707
  Serious: Yes (Hospitalization)
  Sender: FDA-Public Use
  Company Number: 2005UW18620

PATIENT
  Age: 36 Year
  Sex: Male

DRUGS (3)
  1. SEROQUEL [Suspect]
  2. KLONOPIN [Suspect]
  3. LAMICTAL [Suspect]

REACTIONS (1)
  - SUICIDE ATTEMPT [None]
